FAERS Safety Report 4837954-5 (Version None)
Quarter: 2005Q4

REPORT INFORMATION
  Report Type: 
  Country: None (occurrence: None)
  Receive Date: 20051128
  Receipt Date: 20051116
  Transmission Date: 20060501
  Serious: Yes (Hospitalization)
  Sender: FDA-Public Use
  Company Number: GB-ROCHE-425231

PATIENT
  Age: 47 Year
  Sex: Male

DRUGS (32)
  1. MYCOPHENOLATE MOFETIL [Suspect]
     Route: 042
     Dates: start: 20040927, end: 20041002
  2. MYCOPHENOLATE MOFETIL [Suspect]
     Route: 048
     Dates: start: 20041003, end: 20050919
  3. TACROLIMUS [Suspect]
     Route: 048
     Dates: start: 20040928, end: 20040929
  4. TACROLIMUS [Suspect]
     Route: 048
     Dates: start: 20040930, end: 20050919
  5. HYDROCORTISONE [Suspect]
     Route: 065
     Dates: start: 20040927, end: 20040929
  6. PREDNISOLONE [Suspect]
     Route: 065
     Dates: start: 20040929, end: 20041220
  7. FENTANYL [Concomitant]
     Dates: start: 20040927, end: 20040927
  8. PROPOFOL [Concomitant]
     Dates: start: 20040927, end: 20040928
  9. ATRACURIUM [Concomitant]
     Dates: start: 20040927, end: 20040927
  10. TAZOCIN [Concomitant]
     Dates: start: 20040927, end: 20040927
  11. 1 CONCOMITANT DRUG [Concomitant]
     Dosage: REPORTED AS ALFENTANYL
     Dates: start: 20040927, end: 20040927
  12. NOREPINEPHRINE [Concomitant]
     Indication: BLOOD PRESSURE MANAGEMENT
     Dates: start: 20040927, end: 20040928
  13. CALCIUM GLUCONATE [Concomitant]
     Dates: start: 20040927, end: 20040927
  14. TRASYLOL [Concomitant]
     Dates: start: 20040927, end: 20040927
  15. AUGMENTIN [Concomitant]
     Dates: start: 20040927, end: 20040929
  16. CHLORHEXIDINE [Concomitant]
     Indication: PROPHYLAXIS
     Dosage: REPORTED AS CHLORHEXIDINE BODY WASH
     Dates: start: 20040928, end: 20040929
  17. CIPROFLOXACIN [Concomitant]
     Dates: start: 20040927, end: 20041003
  18. COTRIMOXAZOLE [Concomitant]
     Dates: start: 20040929, end: 20041206
  19. FLUCONAZOLE [Concomitant]
     Dates: start: 20040927, end: 20040928
  20. FORCEVAL [Concomitant]
     Dates: start: 20040929, end: 20040929
  21. MUPIROCIN [Concomitant]
     Indication: PROPHYLAXIS
     Dates: start: 20040927, end: 20040929
  22. PANTOPRAZOLE [Concomitant]
     Dates: start: 20040927, end: 20040928
  23. ACETAMINOPHEN [Concomitant]
     Dates: start: 20040928, end: 20041007
  24. VITAMIN B/VITAMIN C [Concomitant]
     Dates: start: 20040928, end: 20040929
  25. LANSOPRAZOLE [Concomitant]
     Dosage: STOPPED FROM 29 SEPTEMBER 2004 AND RE-STARTED ON 5 OCTOBER 2004.
     Dates: start: 20040929, end: 20041018
  26. MAGNESIUM SULFATE [Concomitant]
     Dates: start: 20040927, end: 20040928
  27. NYSTATIN [Concomitant]
     Dates: start: 20040929, end: 20041018
  28. ESOMEPRAZOLE [Concomitant]
     Dates: start: 20040930, end: 20041004
  29. TRAMADOL HCL [Concomitant]
     Dates: start: 20040930, end: 20041001
  30. CYCLIZINE [Concomitant]
     Dates: start: 20040930, end: 20040930
  31. QUININE SULPHATE [Concomitant]
     Dates: start: 20041018
  32. ACYCLOVIR [Concomitant]
     Dates: start: 20050801, end: 20050808

REACTIONS (1)
  - NEPHROLITHIASIS [None]
